FAERS Safety Report 5519529-8 (Version None)
Quarter: 2007Q4

REPORT INFORMATION
  Report Type: 
  Country: None (occurrence: None)
  Receive Date: 20071116
  Receipt Date: 20071114
  Transmission Date: 20080405
  Serious: Yes (Other)
  Sender: FDA-Public Use
  Company Number: A0694516A

PATIENT
  Age: 47 Year
  Sex: Female

DRUGS (6)
  1. ZOVIRAX [Suspect]
     Indication: ANTIVIRAL PROPHYLAXIS
     Dosage: 200MG TWICE PER DAY
     Route: 048
     Dates: start: 20010101
  2. ACYCLOVIR [Suspect]
     Indication: ANTIVIRAL PROPHYLAXIS
     Dosage: 200MG TWICE PER DAY
     Route: 048
     Dates: start: 20010101
  3. LITHIUM CARBONATE [Concomitant]
  4. ATENOLOL [Concomitant]
  5. HYDROCHLOROTHIAZIDE [Concomitant]
  6. ZOCOR [Concomitant]

REACTIONS (1)
  - HYPOKALAEMIA [None]
